FAERS Safety Report 7649911-4 (Version None)
Quarter: 2011Q3

REPORT INFORMATION
  Report Type: 
  Country: None (occurrence: None)
  Receive Date: 20110719
  Receipt Date: 20100628
  Transmission Date: 20111222
  Serious: Yes (Hospitalization)
  Sender: FDA-Public Use
  Company Number: 163-50794-10062994

PATIENT
  Age: 86 Year
  Sex: Male
  Weight: 83.4619 kg

DRUGS (1)
  1. VIDAZA [Suspect]
     Indication: MYELODYSPLASTIC SYNDROME
     Dosage: 75 MG/M2, SC
     Route: 058
     Dates: start: 20100517, end: 20100525

REACTIONS (1)
  - PANCYTOPENIA [None]
